FAERS Safety Report 10077635 (Version 1)
Quarter: 2014Q2

REPORT INFORMATION
  Report Type: Spontaneous
  Country: US (occurrence: US)
  Receive Date: 20140414
  Receipt Date: 20140414
  Transmission Date: 20141212
  Serious: No
  Sender: FDA-Public Use
  Company Number: US-BANPHARM-20142034

PATIENT
  Age: 75 Year
  Sex: Female
  Weight: 61.24 kg

DRUGS (6)
  1. ALEVE LIQUID GELS 220 MG [Suspect]
     Indication: MYALGIA
     Dosage: 2 DF, ONCE,
     Route: 048
     Dates: start: 20140113, end: 20140113
  2. VITAMIN D [Concomitant]
  3. ASPIRIN [Concomitant]
     Dosage: 1 DF, QD,
  4. CALCIUM TABLETS [Concomitant]
  5. FISH OIL [Concomitant]
  6. MULTI VITAMIN [Concomitant]

REACTIONS (1)
  - Drug ineffective [Unknown]
